FAERS Safety Report 24609559 (Version 2)
Quarter: 2024Q4

REPORT INFORMATION
  Report Type: Spontaneous
  Country: BR (occurrence: BR)
  Receive Date: 20241112
  Receipt Date: 20241118
  Transmission Date: 20250115
  Serious: Yes (Hospitalization)
  Sender: SANDOZ
  Company Number: BR-002147023-NVSC2021BR179341

PATIENT
  Age: 63 Year
  Sex: Female
  Weight: 78 kg

DRUGS (12)
  1. CLOPIDOGREL [Suspect]
     Active Substance: CLOPIDOGREL BISULFATE
     Indication: Product used for unknown indication
     Dosage: 1 DOSAGE FORM, QD
     Route: 065
  2. ROSUVASTATIN [Suspect]
     Active Substance: ROSUVASTATIN
     Indication: Product used for unknown indication
     Dosage: 1 DOSAGE FORM, QD
     Route: 065
  3. XOLAIR [Suspect]
     Active Substance: OMALIZUMAB
     Indication: Urticaria chronic
     Dosage: 1 DF, EVERY 30 DAYS
     Route: 058
     Dates: start: 202012, end: 20210505
  4. XOLAIR [Suspect]
     Active Substance: OMALIZUMAB
     Dosage: 1 DF, EVERY 40 DAYS
     Route: 058
     Dates: start: 20210505
  5. XOLAIR [Suspect]
     Active Substance: OMALIZUMAB
     Dosage: 2 DOSAGE FORM, 2 SYRINGES EVERY 21 DAYS
     Route: 058
     Dates: start: 2020, end: 202410
  6. XOLAIR [Suspect]
     Active Substance: OMALIZUMAB
     Indication: Urticaria chronic
     Dosage: 300 MG, QMO
     Route: 065
  7. XOLAIR [Suspect]
     Active Substance: OMALIZUMAB
     Dosage: 300 MG, ONCE EVERY 40 DAYS
     Route: 065
     Dates: start: 20210604
  8. ASPIRIN [Concomitant]
     Active Substance: ASPIRIN
     Indication: Anticoagulant therapy
     Dosage: 1 DF, QD
     Route: 048
  9. ASPIRIN [Concomitant]
     Active Substance: ASPIRIN
     Dosage: 1 UNK, QD (PER DAY AFTER LUNCH)
     Route: 048
     Dates: start: 20210721
  10. BILASTINE [Concomitant]
     Active Substance: BILASTINE
     Indication: Urticaria chronic
     Dosage: 1 DF, BID
     Route: 048
     Dates: start: 2020
  11. INDAPAMIDE [Concomitant]
     Active Substance: INDAPAMIDE
     Indication: Product used for unknown indication
     Dosage: 1 DOSAGE FORM, QD, 1 TABLET A DAY
     Route: 065
  12. NEBIVOLOL HYDROCHLORIDE [Concomitant]
     Active Substance: NEBIVOLOL HYDROCHLORIDE
     Indication: Product used for unknown indication
     Dosage: 1 DOSAGE FORM, QD,1 TABLET A DAY
     Route: 065

REACTIONS (11)
  - Cerebrovascular accident [Recovering/Resolving]
  - Laryngospasm [Unknown]
  - Erythema [Recovered/Resolved]
  - Low density lipoprotein abnormal [Unknown]
  - Blood cholesterol abnormal [Recovered/Resolved]
  - Peripheral swelling [Unknown]
  - Contusion [Unknown]
  - Urticaria [Recovered/Resolved]
  - Urticaria [Unknown]
  - Pruritus [Unknown]
  - Off label use [Unknown]

NARRATIVE: CASE EVENT DATE: 20210604
